FAERS Safety Report 18392873 (Version 1)
Quarter: 2020Q4

REPORT INFORMATION
  Report Type: Spontaneous
  Country: NZ (occurrence: NZ)
  Receive Date: 20201016
  Receipt Date: 20201016
  Transmission Date: 20210114
  Serious: Yes (Other)
  Sender: FDA-Public Use
  Company Number: NZ-ASTRAZENECA-2020SF31162

PATIENT
  Sex: Male

DRUGS (1)
  1. GEFITINIB. [Suspect]
     Active Substance: GEFITINIB
     Route: 048

REACTIONS (1)
  - Disease progression [Unknown]
